FAERS Safety Report 16162547 (Version 1)
Quarter: 2019Q2

REPORT INFORMATION
  Report Type: Spontaneous
  Country: US (occurrence: US)
  Receive Date: 20190404
  Receipt Date: 20190404
  Transmission Date: 20190711
  Serious: Yes (Death)
  Sender: FDA-Public Use
  Company Number: None

PATIENT
  Age: 35 Year
  Sex: Male
  Weight: 161.5 kg

DRUGS (7)
  1. LUMASON [Suspect]
     Active Substance: SULFUR HEXAFLUORIDE
     Indication: CARDIAC IMAGING PROCEDURE
     Route: 040
     Dates: start: 20190402
  2. CEFTRIAXONE 1G [Concomitant]
     Dates: start: 20190401
  3. COLLAGENASE OINTMENT [Concomitant]
     Active Substance: COLLAGENASE CLOSTRIDIUM HISTOLYTICUM
     Dates: start: 20190401
  4. METHYLPREDNISOLONE 1000MG [Concomitant]
     Dates: start: 20190401
  5. ENOXAPARIN 40MG [Concomitant]
     Active Substance: ENOXAPARIN
     Dates: start: 20190401
  6. FAMOTIDINE 20MG [Concomitant]
     Active Substance: FAMOTIDINE
     Dates: start: 20190401
  7. GADOBUTROL 15ML [Concomitant]
     Dates: start: 20190401, end: 20190401

REACTIONS (3)
  - Lung assist device therapy [None]
  - Contrast media reaction [None]
  - Pulseless electrical activity [None]

NARRATIVE: CASE EVENT DATE: 20190402
